FAERS Safety Report 6917660-3 (Version None)
Quarter: 2010Q3

REPORT INFORMATION
  Report Type: 
  Country: None (occurrence: None)
  Receive Date: 20100810
  Receipt Date: 20081029
  Transmission Date: 20110219
  Serious: No
  Sender: FDA-Public Use
  Company Number: US-WYE-H06611808

PATIENT
  Sex: Female
  Weight: 56.75 kg

DRUGS (2)
  1. PHENERGAN [Suspect]
     Indication: NASOPHARYNGITIS
     Dosage: UNKNOWN
     Dates: start: 20080925
  2. XYREM [Suspect]
     Indication: NARCOLEPSY
     Route: 048
     Dates: start: 20080920

REACTIONS (1)
  - FATIGUE [None]
